FAERS Safety Report 9890463 (Version 1)
Quarter: 2014Q1

REPORT INFORMATION
  Report Type: Spontaneous
  Country: US (occurrence: None)
  Receive Date: 20140211
  Receipt Date: 20140211
  Transmission Date: 20141002
  Serious: Yes (Death)
  Sender: FDA-Public Use
  Company Number: None

PATIENT
  Age: 72 Year
  Sex: Male
  Weight: 110.68 kg

DRUGS (1)
  1. ALDARA [Suspect]
     Dosage: 1 PACKET?QD?TOPICAL
     Route: 061
     Dates: start: 20140106, end: 20140113

REACTIONS (2)
  - Stevens-Johnson syndrome [None]
  - Toxic epidermal necrolysis [None]
